FAERS Safety Report 9660581 (Version 1)
Quarter: 2013Q4

REPORT INFORMATION
  Report Type: Spontaneous
  Country: IN (occurrence: IN)
  Receive Date: 20131031
  Receipt Date: 20131031
  Transmission Date: 20140711
  Serious: Yes (Death)
  Sender: FDA-Public Use
  Company Number: IN-009507513-1310IND014619

PATIENT
  Age: 92 Year
  Sex: 0

DRUGS (1)
  1. JANUMET [Suspect]
     Dosage: STRENGTH 50/500, BID
     Route: 048

REACTIONS (1)
  - Death [Fatal]
